FAERS Safety Report 6316518-0 (Version None)
Quarter: 2009Q3

REPORT INFORMATION
  Report Type: 
  Country: None (occurrence: None)
  Receive Date: 20090820
  Receipt Date: 20090807
  Transmission Date: 20100115
  Serious: Yes (Hospitalization)
  Sender: FDA-Public Use
  Company Number: US-WATSON-2009-06359

PATIENT
  Sex: Male

DRUGS (3)
  1. IRINOTECAN HYDROCHLORIDE [Suspect]
     Indication: COLORECTAL CANCER METASTATIC
     Dosage: UNK
     Route: 065
     Dates: start: 20090617, end: 20090617
  2. ELOXATIN [Suspect]
     Indication: COLORECTAL CANCER METASTATIC
     Dosage: UNK
     Route: 042
     Dates: start: 20090617, end: 20090617
  3. AVASTIN [Suspect]
     Indication: COLORECTAL CANCER METASTATIC
     Dosage: UNK
     Route: 065
     Dates: start: 20090617, end: 20090617

REACTIONS (3)
  - ANAPHYLACTIC REACTION [None]
  - EYE ROLLING [None]
  - RESPIRATORY ARREST [None]
